FAERS Safety Report 5065519-1 (Version None)
Quarter: 2006Q3

REPORT INFORMATION
  Report Type: 
  Country: None (occurrence: None)
  Receive Date: 20060731
  Receipt Date: 20060720
  Transmission Date: 20061208
  Serious: Yes (Other)
  Sender: FDA-Public Use
  Company Number: PHEH2006US09372

PATIENT
  Age: 3 Year
  Sex: Male

DRUGS (2)
  1. ZYRTEC [Concomitant]
     Indication: HYPERSENSITIVITY
  2. ELIDEL [Suspect]
     Indication: ECZEMA
     Route: 061
     Dates: end: 20060701

REACTIONS (2)
  - BRAIN NEOPLASM [None]
  - LYMPHADENOPATHY [None]
